FAERS Safety Report 9392921 (Version 2)
Quarter: 2013Q4

REPORT INFORMATION
  Report Type: Spontaneous
  Country: US (occurrence: US)
  Receive Date: 20130710
  Receipt Date: 20131220
  Transmission Date: 20140711
  Serious: Yes (Hospitalization, Other)
  Sender: FDA-Public Use
  Company Number: US-PFIZER INC-2013157331

PATIENT
  Age: 69 Year
  Sex: Male

DRUGS (4)
  1. TIKOSYN [Suspect]
     Indication: VENTRICULAR TACHYCARDIA
     Dosage: 0.125 MG, 2X/DAY
     Route: 048
     Dates: start: 20111002
  2. TIKOSYN [Suspect]
     Dosage: 0.250 MG, 2X/DAY
     Dates: start: 20120816
  3. TIKOSYN [Suspect]
     Dosage: 0.125 MG, 2X/DAY
     Dates: start: 20130521, end: 20130601
  4. TIKOSYN [Suspect]
     Dosage: 0.250 MG, UNK
     Route: 048
     Dates: start: 20130603

REACTIONS (3)
  - Drug ineffective for unapproved indication [Unknown]
  - Electrocardiogram QT prolonged [Unknown]
  - Drug ineffective for unapproved indication [Unknown]
